FAERS Safety Report 9807625 (Version 2)
Quarter: 2014Q1

REPORT INFORMATION
  Report Type: Spontaneous
  Country: US (occurrence: US)
  Receive Date: 20140110
  Receipt Date: 20140110
  Transmission Date: 20141002
  Serious: Yes (Death, Other)
  Sender: FDA-Public Use
  Company Number: US-DENDREON CORPORATION-2013PROUSA03408

PATIENT
  Age: 79 Year
  Sex: Male

DRUGS (3)
  1. PROVENGE [Suspect]
     Indication: PROSTATE CANCER METASTATIC
     Dosage: 250 ML, SINGLE
     Route: 042
     Dates: start: 20120217, end: 20120217
  2. PROVENGE [Suspect]
     Dosage: 250 ML, SINGLE
     Route: 042
     Dates: start: 20120302, end: 20120302
  3. PROVENGE [Suspect]
     Dosage: 250 ML, SINGLE
     Route: 042
     Dates: start: 20120316, end: 20120316

REACTIONS (4)
  - Prostate cancer metastatic [Fatal]
  - Convulsion [Unknown]
  - Lymphocytosis [Unknown]
  - Clostridium difficile colitis [Unknown]
